FAERS Safety Report 8533767-1 (Version None)
Quarter: 2012Q3

REPORT INFORMATION
  Report Type: 
  Country: None (occurrence: None)
  Receive Date: 20120724
  Receipt Date: 20120716
  Transmission Date: 20120928
  Serious: Yes (Other)
  Sender: FDA-Public Use
  Company Number: CA-ASTRAZENECA-2012SE45537

PATIENT
  Age: 69 Year
  Sex: Female

DRUGS (5)
  1. VENTOLIN [Concomitant]
     Indication: LOWER RESPIRATORY TRACT INFECTION
     Route: 048
     Dates: start: 20120617, end: 20120621
  2. ACCURETIC [Concomitant]
     Dosage: 20/12.5 MG, ONCE DAILY
     Route: 048
     Dates: start: 20100101
  3. CRESTOR [Suspect]
     Route: 048
     Dates: start: 20120101
  4. PREDNISONE [Concomitant]
  5. ACCURETIC [Concomitant]
     Indication: BLOOD PRESSURE ABNORMAL
     Dosage: 10/12.5 MG
     Dates: start: 20010101, end: 20100101

REACTIONS (1)
  - VISUAL IMPAIRMENT [None]
